FAERS Safety Report 11138949 (Version 1)
Quarter: 2015Q2

REPORT INFORMATION
  Report Type: Spontaneous
  Country: IL (occurrence: IL)
  Receive Date: 20150527
  Receipt Date: 20150527
  Transmission Date: 20150821
  Serious: Yes (Hospitalization, Other)
  Sender: FDA-Public Use
  Company Number: IL-BIOGENIDEC-2014BI115551

PATIENT
  Age: 34 Year
  Sex: Female

DRUGS (1)
  1. TYSABRI [Suspect]
     Active Substance: NATALIZUMAB
     Indication: MULTIPLE SCLEROSIS
     Route: 042

REACTIONS (8)
  - Abortion induced [Unknown]
  - Urinary tract infection pseudomonal [Unknown]
  - Amniotic cavity infection [Recovered/Resolved]
  - Haemoglobin decreased [Unknown]
  - Headache [Unknown]
  - Streptococcal sepsis [Unknown]
  - Maternal exposure during pregnancy [Unknown]
  - Streptococcal urinary tract infection [Unknown]

NARRATIVE: CASE EVENT DATE: 201411
